FAERS Safety Report 21087577 (Version 4)
Quarter: 2022Q3

REPORT INFORMATION
  Report Type: Report from Study
  Country: US (occurrence: None)
  Receive Date: 20220715
  Receipt Date: 20220830
  Transmission Date: 20221027
  Serious: Yes (Hospitalization)
  Sender: FDA-Public Use
  Company Number: US-ROCHE-2942999

PATIENT
  Age: 67 Year
  Sex: Male
  Weight: 74.4 kg

DRUGS (50)
  1. ATEZOLIZUMAB [Suspect]
     Active Substance: ATEZOLIZUMAB
     Indication: Renal cell carcinoma
     Dosage: ON 14/SEP/2021, RECEIVED MOST RECENT DOSE 1200 MG OF ATEZOLIZUMAB.
     Route: 041
     Dates: start: 20210419
  2. CABOZANTINIB [Suspect]
     Active Substance: CABOZANTINIB
     Indication: Renal cell carcinoma
     Dosage: ON 05/OCT/2021, RECEIVED MOST RECENT DOSE 20 MG OF CABOZANTINIB.
     Route: 048
     Dates: start: 20210419
  3. AMLODIPINE [Concomitant]
     Active Substance: AMLODIPINE BESYLATE
     Indication: Hypertension
     Route: 048
     Dates: start: 20201013
  4. OMEPRAZOLE [Concomitant]
     Active Substance: OMEPRAZOLE
     Indication: Gastrooesophageal reflux disease
     Route: 048
     Dates: start: 20210528
  5. PROCHLORPERAZINE [Concomitant]
     Active Substance: PROCHLORPERAZINE
     Indication: Nausea
     Route: 048
     Dates: start: 20210421
  6. PROCHLORPERAZINE [Concomitant]
     Active Substance: PROCHLORPERAZINE
     Indication: Vomiting
  7. XANAX [Concomitant]
     Active Substance: ALPRAZOLAM
     Indication: Anxiety
     Route: 048
     Dates: start: 20200714
  8. ASPIRIN [Concomitant]
     Active Substance: ASPIRIN
     Indication: Prophylaxis
     Route: 048
     Dates: start: 20180116
  9. LIPITOR [Concomitant]
     Active Substance: ATORVASTATIN CALCIUM
     Indication: Hyperlipidaemia
     Route: 048
     Dates: start: 20180116
  10. WELLBUTRIN [Concomitant]
     Active Substance: BUPROPION HYDROCHLORIDE
     Indication: Anxiety
     Route: 048
     Dates: start: 20200204
  11. MINERALS [Concomitant]
     Active Substance: MINERALS
     Indication: Prophylaxis
     Route: 048
     Dates: start: 20180118
  12. CORTEF [Concomitant]
     Active Substance: HYDROCORTISONE
     Indication: Adrenal insufficiency
     Route: 048
     Dates: start: 20210329
  13. ANASPAZ [Concomitant]
     Active Substance: HYOSCYAMINE SULFATE
     Indication: Abdominal pain
     Route: 048
     Dates: start: 20201016
  14. LOPERAMIDE [Concomitant]
     Active Substance: LOPERAMIDE
     Indication: Diarrhoea
     Route: 048
     Dates: start: 20190820
  15. LOPERAMIDE [Concomitant]
     Active Substance: LOPERAMIDE
     Indication: Prophylaxis
  16. REMERON [Concomitant]
     Active Substance: MIRTAZAPINE
     Indication: Anxiety
     Route: 048
     Dates: start: 20180118, end: 20211019
  17. REMERON [Concomitant]
     Active Substance: MIRTAZAPINE
     Route: 048
     Dates: start: 20211020
  18. BYSTOLIC [Concomitant]
     Active Substance: NEBIVOLOL HYDROCHLORIDE
     Indication: Hypertension
     Route: 048
     Dates: start: 20200204
  19. COMPAZINE [Concomitant]
     Active Substance: PROCHLORPERAZINE MALEATE
     Indication: Nausea
     Route: 048
     Dates: start: 20210517
  20. TESTOSTERONE CYPIONATE [Concomitant]
     Active Substance: TESTOSTERONE CYPIONATE
     Indication: Androgen deficiency
     Dosage: DOSE: 200 OTHER
     Route: 030
     Dates: start: 20210429
  21. CARAFATE [Concomitant]
     Active Substance: SUCRALFATE
     Indication: Gastrooesophageal reflux disease
     Route: 048
     Dates: start: 20210528
  22. NEURONTIN [Concomitant]
     Active Substance: GABAPENTIN
     Indication: Pain
     Route: 048
     Dates: start: 20210713
  23. NARCAN [Concomitant]
     Active Substance: NALOXONE HYDROCHLORIDE
     Route: 045
     Dates: start: 20210713
  24. DOCUSATE SODIUM\SENNOSIDES [Concomitant]
     Active Substance: DOCUSATE SODIUM\SENNOSIDES
     Dosage: DOSE: 1 TABLET
     Route: 048
     Dates: start: 20210713
  25. SYNTHROID [Concomitant]
     Active Substance: LEVOTHYROXINE SODIUM
     Indication: Hypothyroidism
     Route: 048
     Dates: start: 20210809
  26. ROXICODONE [Concomitant]
     Active Substance: OXYCODONE HYDROCHLORIDE
     Indication: Pain
     Route: 048
     Dates: start: 20210812
  27. DURAGESIC [Concomitant]
     Active Substance: FENTANYL
     Indication: Pain
     Route: 062
     Dates: start: 20210816, end: 20210929
  28. DURAGESIC [Concomitant]
     Active Substance: FENTANYL
     Route: 062
     Dates: start: 20210929, end: 20211019
  29. DURAGESIC [Concomitant]
     Active Substance: FENTANYL
     Route: 062
     Dates: start: 20211019
  30. BISACODYL [Concomitant]
     Active Substance: BISACODYL
     Indication: Constipation
     Route: 054
     Dates: start: 20211022
  31. CLONAZEPAM [Concomitant]
     Active Substance: CLONAZEPAM
     Indication: Anxiety
     Route: 048
     Dates: start: 20211019
  32. ONDANSETRON [Concomitant]
     Active Substance: ONDANSETRON
     Indication: Nausea
     Route: 048
     Dates: start: 20211019
  33. POLYETHYLENE GLYCOL [Concomitant]
     Active Substance: POLYETHYLENE GLYCOL
     Indication: Constipation
     Route: 048
     Dates: start: 20211018
  34. POTASSIUM CHLORIDE [Concomitant]
     Active Substance: POTASSIUM CHLORIDE
     Indication: Hypokalaemia
     Dosage: 1 TABLET
     Route: 048
     Dates: start: 20211020, end: 20211020
  35. POTASSIUM CHLORIDE [Concomitant]
     Active Substance: POTASSIUM CHLORIDE
     Dosage: 1 TABLET
     Route: 048
     Dates: start: 20211021, end: 20211021
  36. POTASSIUM CHLORIDE [Concomitant]
     Active Substance: POTASSIUM CHLORIDE
     Dosage: 1 TABLET
     Route: 048
     Dates: start: 20211022, end: 20211027
  37. ACETAMINOPHEN [Concomitant]
     Active Substance: ACETAMINOPHEN
     Route: 048
     Dates: start: 20211018, end: 20211018
  38. DULCOLAX (BISACODYL) [Concomitant]
     Active Substance: BISACODYL
     Indication: Constipation
     Route: 054
     Dates: start: 20211019, end: 20211019
  39. HEPARIN [Concomitant]
     Active Substance: HEPARIN SODIUM
     Dosage: 5000 U
     Route: 058
     Dates: start: 20211021, end: 20211022
  40. HYDROCORTISONE [Concomitant]
     Active Substance: HYDROCORTISONE
     Indication: Adrenal insufficiency
     Route: 042
     Dates: start: 20211018, end: 20211018
  41. HYDROCORTISONE [Concomitant]
     Active Substance: HYDROCORTISONE
     Route: 042
     Dates: start: 20211018, end: 20211019
  42. DILAUDID [Concomitant]
     Active Substance: HYDROMORPHONE HYDROCHLORIDE
     Indication: Pain
     Route: 042
     Dates: start: 20211018, end: 20211021
  43. DILAUDID [Concomitant]
     Active Substance: HYDROMORPHONE HYDROCHLORIDE
     Route: 042
     Dates: start: 20211018, end: 20211021
  44. TORADOL [Concomitant]
     Active Substance: KETOROLAC TROMETHAMINE
     Indication: Pain
     Route: 042
     Dates: start: 20211018, end: 20211022
  45. LACTULOSE [Concomitant]
     Active Substance: LACTULOSE
     Indication: Constipation
     Route: 048
     Dates: start: 20211019, end: 20211022
  46. LIDOCAINE [Concomitant]
     Active Substance: LIDOCAINE
     Indication: Pain
     Route: 062
     Dates: start: 20211022
  47. ATIVAN [Concomitant]
     Active Substance: LORAZEPAM
     Indication: Anxiety
     Route: 048
     Dates: start: 20211019, end: 20211019
  48. MAGNESIUM SULFATE [Concomitant]
     Active Substance: MAGNESIUM SULFATE
     Indication: Hypomagnesaemia
     Route: 042
     Dates: start: 20211020, end: 20211020
  49. MELATONIN [Concomitant]
     Active Substance: MELATONIN
     Indication: Prophylaxis
     Route: 048
     Dates: start: 20211019, end: 20211020
  50. ZOFRAN [Concomitant]
     Active Substance: ONDANSETRON HYDROCHLORIDE
     Indication: Nausea
     Route: 042
     Dates: start: 20211018, end: 20211018

REACTIONS (1)
  - Diverticulitis [Not Recovered/Not Resolved]

NARRATIVE: CASE EVENT DATE: 20211018
